FAERS Safety Report 6019956-9 (Version None)
Quarter: 2008Q4

REPORT INFORMATION
  Report Type: 
  Country: None (occurrence: None)
  Receive Date: 20081223
  Receipt Date: 20081209
  Transmission Date: 20090506
  Serious: Yes (Hospitalization)
  Sender: FDA-Public Use
  Company Number: 2008SP002978

PATIENT
  Age: 79 Year
  Sex: Female
  Weight: 72.9 kg

DRUGS (7)
  1. XOPENEX [Suspect]
     Indication: CHRONIC OBSTRUCTIVE PULMONARY DISEASE
     Dosage: 1.25 MG/3ML;PRN, INHALATION, 1.25 MG/3ML;PRN;INHALATION
     Route: 055
     Dates: end: 20080301
  2. XOPENEX [Suspect]
     Indication: CHRONIC OBSTRUCTIVE PULMONARY DISEASE
     Dosage: 1.25 MG/3ML;PRN, INHALATION, 1.25 MG/3ML;PRN;INHALATION
     Route: 055
     Dates: start: 20080101
  3. RANITIDINE [Concomitant]
  4. COUMADIN [Concomitant]
  5. PREDNISONE TAB [Concomitant]
  6. OXYGEN [Concomitant]
  7. ZOLOFT [Concomitant]

REACTIONS (33)
  - ABDOMINAL PAIN UPPER [None]
  - AMNESIA [None]
  - ANAEMIA [None]
  - APHAGIA [None]
  - ARTHRALGIA [None]
  - ATELECTASIS [None]
  - BONE PAIN [None]
  - BRONCHITIS CHRONIC [None]
  - CHEST PAIN [None]
  - CHRONIC OBSTRUCTIVE PULMONARY DISEASE [None]
  - CONDITION AGGRAVATED [None]
  - DIAPHRAGMATIC HERNIA [None]
  - DIZZINESS [None]
  - DRUG HYPERSENSITIVITY [None]
  - EATING DISORDER [None]
  - ESCHERICHIA URINARY TRACT INFECTION [None]
  - ESSENTIAL HYPERTENSION [None]
  - GASTROOESOPHAGEAL REFLUX DISEASE [None]
  - HAEMOTHORAX [None]
  - HIATUS HERNIA [None]
  - HYPERNATRAEMIA [None]
  - HYPEROSMOLAR STATE [None]
  - HYPOPERFUSION [None]
  - IRRITABLE BOWEL SYNDROME [None]
  - LEUKOPENIA [None]
  - MAJOR DEPRESSION [None]
  - OEDEMA PERIPHERAL [None]
  - PAIN [None]
  - PULMONARY EMBOLISM [None]
  - SCAR [None]
  - THROAT IRRITATION [None]
  - THROMBOSIS [None]
  - VIRAL INFECTION [None]
